FAERS Safety Report 9624633 (Version 1)
Quarter: 2013Q4

REPORT INFORMATION
  Report Type: Spontaneous
  Country: FR (occurrence: FR)
  Receive Date: 20131015
  Receipt Date: 20131015
  Transmission Date: 20140711
  Serious: Yes (Hospitalization)
  Sender: FDA-Public Use
  Company Number: FR-B.I. PHARMACEUTICALS,INC./RIDGEFIELD-2013-FF-02485FF

PATIENT
  Age: 84 Year
  Sex: Male

DRUGS (6)
  1. PRADAXA [Suspect]
     Indication: CEREBROVASCULAR ACCIDENT
     Dosage: 220 MG
     Route: 048
     Dates: start: 20130603, end: 20130910
  2. PRADAXA [Suspect]
     Indication: ATRIAL FIBRILLATION
  3. TAHOR [Concomitant]
     Dosage: 20 MG TABLET
     Route: 048
  4. HEMIGOXINE NATIVELLE [Concomitant]
     Dosage: 0.125 MG TABLET
     Route: 048
  5. BISOPROLOL [Concomitant]
  6. REPAGLINIDE [Concomitant]

REACTIONS (2)
  - Ischaemic stroke [Not Recovered/Not Resolved]
  - Drug ineffective [Not Recovered/Not Resolved]
